FAERS Safety Report 5144593-8 (Version None)
Quarter: 2006Q4

REPORT INFORMATION
  Report Type: 
  Country: None (occurrence: None)
  Receive Date: 20061031
  Receipt Date: 20061025
  Transmission Date: 20070319
  Serious: Yes (Hospitalization)
  Sender: FDA-Public Use
  Company Number: S06-FRA-04185-01

PATIENT
  Sex: Male

DRUGS (5)
  1. SEROPLEX           (ESCITALOPRAM) [Suspect]
     Indication: DEPRESSION
     Dosage: 10 MG QD PO
     Route: 048
  2. HEMIDIGOXINE        (DIGOXIN) [Concomitant]
  3. PREVISCAN          (FLUINDIONE) [Concomitant]
  4. RABEPRAZOLE SODIUM [Concomitant]
  5. MOTILIUM [Concomitant]

REACTIONS (3)
  - CONFUSIONAL STATE [None]
  - INCORRECT DOSE ADMINISTERED [None]
  - SPEECH DISORDER [None]
